FAERS Safety Report 9278698 (Version 1)
Quarter: 2013Q2

REPORT INFORMATION
  Report Type: Spontaneous
  Country: US (occurrence: None)
  Receive Date: 20130506
  Receipt Date: 20130506
  Transmission Date: 20140414
  Serious: Yes (Other)
  Sender: FDA-Public Use
  Company Number: None

PATIENT
  Age: 50 Year
  Sex: Female
  Weight: 47.17 kg

DRUGS (1)
  1. RESTASIS [Suspect]
     Indication: DRY EYE
     Route: 047
     Dates: start: 20120901, end: 20130501

REACTIONS (8)
  - Eye pain [None]
  - Hypoaesthesia eye [None]
  - Dry eye [None]
  - Ocular hyperaemia [None]
  - Vision blurred [None]
  - Eye discharge [None]
  - Eye disorder [None]
  - Condition aggravated [None]
